FAERS Safety Report 25609879 (Version 2)
Quarter: 2025Q3

REPORT INFORMATION
  Report Type: Spontaneous
  Country: US (occurrence: US)
  Receive Date: 20250728
  Receipt Date: 20250730
  Transmission Date: 20251020
  Serious: No
  Sender: AMNEAL
  Company Number: US-AMNEAL PHARMACEUTICALS-2025-AMRX-00194

PATIENT
  Sex: Female

DRUGS (2)
  1. OXYCODONE HYDROCHLORIDE [Suspect]
     Active Substance: OXYCODONE HYDROCHLORIDE
     Indication: Pain
     Route: 065
  2. METHOCARBAMOL [Suspect]
     Active Substance: METHOCARBAMOL
     Indication: Muscle relaxant therapy
     Route: 065

REACTIONS (4)
  - Hypersensitivity [Recovered/Resolved]
  - Oral pruritus [Recovered/Resolved]
  - Pruritus [Recovered/Resolved]
  - Mouth swelling [Recovered/Resolved]

NARRATIVE: CASE EVENT DATE: 20250113
